FAERS Safety Report 7733809-7 (Version None)
Quarter: 2011Q3

REPORT INFORMATION
  Report Type: 
  Country: None (occurrence: None)
  Receive Date: 20110907
  Receipt Date: 20110906
  Transmission Date: 20111222
  Serious: Yes (Death, Other)
  Sender: FDA-Public Use
  Company Number: PHHY2009CA49047

PATIENT
  Sex: Female

DRUGS (5)
  1. GRAVOL TAB [Concomitant]
  2. PERCOCET [Concomitant]
  3. SANDOSTATIN LAR [Suspect]
     Dosage: 30 MG, QMO
     Route: 030
  4. SANDOSTATIN LAR [Suspect]
     Dosage: 30 MG, EVERY 4 WEEKS
     Route: 030
     Dates: end: 20110720
  5. SANDOSTATIN LAR [Suspect]
     Indication: PANCREATIC NEUROENDOCRINE TUMOUR
     Dosage: 30 MG EVERY 4 WEEKS
     Route: 030
     Dates: start: 20061213

REACTIONS (10)
  - BLOOD GLUCOSE INCREASED [None]
  - HEPATIC MASS [None]
  - NAUSEA [None]
  - DEATH [None]
  - WEIGHT DECREASED [None]
  - TYPE 2 DIABETES MELLITUS [None]
  - PAIN [None]
  - METASTASES TO BONE [None]
  - ABDOMINAL DISTENSION [None]
  - SPLENOMEGALY [None]
